FAERS Safety Report 9675550 (Version 1)
Quarter: 2013Q4

REPORT INFORMATION
  Report Type: Spontaneous
  Country: GB (occurrence: GB)
  Receive Date: 20131107
  Receipt Date: 20131107
  Transmission Date: 20140711
  Serious: Yes (Life-Threatening, Hospitalization, Other)
  Sender: FDA-Public Use
  Company Number: GB-MERCK-1311GBR001768

PATIENT
  Age: 14 Year
  Sex: Female

DRUGS (3)
  1. MONTELUKAST SODIUM [Suspect]
     Dosage: 5 MG, QD
     Route: 065
  2. SALBUTAMOL [Suspect]
     Dosage: 1 DF, UNK
     Route: 065
  3. SERETIDE [Suspect]
     Dosage: 250 MICROGRAM, BID
     Route: 065

REACTIONS (5)
  - Cough [Unknown]
  - Fatigue [Unknown]
  - Breath sounds abnormal [Unknown]
  - Dyspnoea [Unknown]
  - Treatment noncompliance [Unknown]
